FAERS Safety Report 5350773-9 (Version None)
Quarter: 2007Q2

REPORT INFORMATION
  Report Type: 
  Country: None (occurrence: None)
  Receive Date: 20070608
  Receipt Date: 20070531
  Transmission Date: 20071010
  Serious: Yes (Hospitalization)
  Sender: FDA-Public Use
  Company Number: GB-ROCHE-499097

PATIENT
  Age: 34 Year
  Sex: Male
  Weight: 69 kg

DRUGS (7)
  1. CELLCEPT [Suspect]
     Indication: RENAL AND PANCREAS TRANSPLANT
     Route: 048
     Dates: start: 20061201
  2. PROGRAF [Suspect]
     Indication: RENAL AND PANCREAS TRANSPLANT
     Route: 048
     Dates: start: 20061201
  3. ASPIRIN [Concomitant]
  4. SIMVASTATIN [Concomitant]
  5. ADALAT [Concomitant]
     Route: 048
     Dates: start: 20061201
  6. GABAPENTIN [Concomitant]
     Route: 048
     Dates: start: 20070403
  7. COTRIMOXAZOLE [Concomitant]

REACTIONS (1)
  - MONARTHRITIS [None]
